FAERS Safety Report 7802652-2 (Version None)
Quarter: 2011Q4

REPORT INFORMATION
  Report Type: 
  Country: None (occurrence: None)
  Receive Date: 20111007
  Receipt Date: 20110926
  Transmission Date: 20120403
  Serious: Yes (Other)
  Sender: FDA-Public Use
  Company Number: PHHY2011CA85099

PATIENT
  Sex: Male

DRUGS (8)
  1. PROSCAR [Concomitant]
  2. TASIGNA [Suspect]
     Indication: CHRONIC MYELOID LEUKAEMIA
     Dosage: 400 MG, BID
     Route: 048
     Dates: start: 20110812, end: 20110819
  3. LASIX [Concomitant]
  4. ADVAIR DISKUS 100/50 [Concomitant]
  5. WARFARIN SODIUM [Concomitant]
  6. RAMIPRIL [Concomitant]
  7. DILTIAZEM HCL [Concomitant]
  8. ALBUTEROL [Concomitant]

REACTIONS (7)
  - PYREXIA [None]
  - NIGHT SWEATS [None]
  - SWELLING FACE [None]
  - RASH [None]
  - CHILLS [None]
  - FATIGUE [None]
  - MYALGIA [None]
